FAERS Safety Report 7939986-7 (Version None)
Quarter: 2011Q4

REPORT INFORMATION
  Report Type: 
  Country: None (occurrence: None)
  Receive Date: 20111125
  Receipt Date: 20111004
  Transmission Date: 20120403
  Serious: Yes (Death, Life-Threatening, Hospitalization, Other)
  Sender: FDA-Public Use
  Company Number: DE-ROCHE-791973

PATIENT
  Sex: Female
  Weight: 80 kg

DRUGS (10)
  1. DIPYRONE TAB [Suspect]
     Indication: PAIN
     Route: 065
     Dates: start: 20100401
  2. METOPROLOL TARTRATE [Concomitant]
  3. NAPROXEN [Suspect]
     Indication: PAIN
  4. FLUPIRTINE MALEATE [Suspect]
     Indication: PAIN
  5. ACETAMINOPHEN [Suspect]
     Indication: PYREXIA
     Route: 048
     Dates: start: 20101201, end: 20101206
  6. DIPYRONE TAB [Suspect]
     Route: 065
     Dates: start: 20101207, end: 20101209
  7. NAPROXEN [Suspect]
     Indication: INTERVERTEBRAL DISC DEGENERATION
     Dosage: DAILY DOSE: 1-0-1
     Route: 048
  8. AMITRIPTYLINE HCL [Suspect]
     Indication: INTERVERTEBRAL DISC DEGENERATION
     Route: 048
     Dates: start: 20101101, end: 20101209
  9. FLUPIRTINE MALEATE [Suspect]
     Indication: SCIATICA
     Dosage: DRUG: KATADOLON(FLUPIRTINE MALEATE)
     Route: 048
     Dates: start: 20101101, end: 20101206
  10. AMITRIPTYLINE HCL [Suspect]
     Indication: PAIN

REACTIONS (7)
  - DISSEMINATED INTRAVASCULAR COAGULATION [None]
  - INTESTINAL ISCHAEMIA [None]
  - SEPTIC SHOCK [None]
  - MULTI-ORGAN FAILURE [None]
  - HEPATORENAL SYNDROME [None]
  - HEPATIC ENCEPHALOPATHY [None]
  - ACUTE HEPATIC FAILURE [None]
